FAERS Safety Report 14832060 (Version 1)
Quarter: 2018Q2

REPORT INFORMATION
  Report Type: Spontaneous
  Country: IT (occurrence: IT)
  Receive Date: 20180501
  Receipt Date: 20180501
  Transmission Date: 20180711
  Serious: Yes (Hospitalization)
  Sender: FDA-Public Use
  Company Number: IT-SA-2018SA111093

PATIENT
  Age: 77 Year
  Sex: Male

DRUGS (11)
  1. UROREC [Concomitant]
     Active Substance: SILODOSIN
  2. TORVAST [Concomitant]
     Active Substance: ATORVASTATIN
  3. LANTUS [Concomitant]
     Active Substance: INSULIN GLARGINE
  4. AVODART [Concomitant]
     Active Substance: DUTASTERIDE
  5. PLAVIX [Suspect]
     Active Substance: CLOPIDOGREL BISULFATE
     Indication: THROMBOSIS PROPHYLAXIS
     Route: 048
     Dates: start: 20170101, end: 20170831
  6. RANEXA [Concomitant]
     Active Substance: RANOLAZINE
     Route: 065
  7. LANSOX [Concomitant]
     Active Substance: LANSOPRAZOLE
  8. CARDIOASPIRIN [Suspect]
     Active Substance: ASPIRIN
     Indication: THROMBOSIS PROPHYLAXIS
     Route: 048
     Dates: start: 20170101, end: 20170831
  9. NORMIX [Concomitant]
     Active Substance: RIFAXIMIN
  10. HUMALOG [Concomitant]
     Active Substance: INSULIN LISPRO
     Route: 065
  11. ZYLORIC [Concomitant]
     Active Substance: ALLOPURINOL

REACTIONS (2)
  - Abdominal pain [Unknown]
  - Haematuria [Unknown]

NARRATIVE: CASE EVENT DATE: 20170830
